FAERS Safety Report 19973517 (Version 1)
Quarter: 2021Q4

REPORT INFORMATION
  Report Type: Spontaneous
  Country: CA (occurrence: CA)
  Receive Date: 20211020
  Receipt Date: 20211020
  Transmission Date: 20220303
  Serious: Yes (Other)
  Sender: FDA-Public Use
  Company Number: CA-TEVA-2021-CA-1966159

PATIENT
  Age: 84 Year
  Sex: Female
  Weight: 77 kg

DRUGS (5)
  1. METHOTREXATE [Suspect]
     Active Substance: METHOTREXATE
     Route: 065
  2. PLAQUENIL [Suspect]
     Active Substance: HYDROXYCHLOROQUINE SULFATE
     Route: 065
  3. ENBREL [Concomitant]
     Active Substance: ETANERCEPT
     Route: 065
  4. ERELZI [Concomitant]
     Active Substance: ETANERCEPT-SZZS
     Route: 065
  5. HUMIRA [Concomitant]
     Active Substance: ADALIMUMAB
     Route: 065

REACTIONS (6)
  - Gait inability [Unknown]
  - Musculoskeletal stiffness [Unknown]
  - Pulmonary fibrosis [Unknown]
  - Contraindication to medical treatment [Unknown]
  - Drug ineffective [Unknown]
  - Drug intolerance [Unknown]
